FAERS Safety Report 10540659 (Version 1)
Quarter: 2014Q4

REPORT INFORMATION
  Report Type: Spontaneous
  Country: US (occurrence: None)
  Receive Date: 20141023
  Receipt Date: 20141023
  Transmission Date: 20150529
  Serious: Yes (Disabling)
  Sender: FDA-Public Use
  Company Number: None

PATIENT
  Age: 61 Year
  Sex: Female
  Weight: 58.97 kg

DRUGS (4)
  1. NAPROSYN [Suspect]
     Active Substance: NAPROXEN
     Indication: PAIN
     Dosage: 2 PILLS TWICE DAILY
     Dates: start: 20140620, end: 20140630
  2. NAPROSYN [Suspect]
     Active Substance: NAPROXEN
     Indication: UPPER LIMB FRACTURE
     Dosage: 2 PILLS TWICE DAILY
     Dates: start: 20140620, end: 20140630
  3. NAPROSYN [Suspect]
     Active Substance: NAPROXEN
     Indication: JOINT DISLOCATION
     Dosage: 2 PILLS TWICE DAILY
     Dates: start: 20140620, end: 20140630
  4. NAPROSYN [Suspect]
     Active Substance: NAPROXEN
     Indication: SWELLING
     Dosage: 2 PILLS TWICE DAILY
     Dates: start: 20140620, end: 20140630

REACTIONS (9)
  - Burning sensation [None]
  - Pain [None]
  - Urticaria [None]
  - Pruritus [None]
  - Purulence [None]
  - Scar [None]
  - Acne [None]
  - Rash [None]
  - Hypoaesthesia [None]

NARRATIVE: CASE EVENT DATE: 20080620
